FAERS Safety Report 17542536 (Version 1)
Quarter: 2020Q1

REPORT INFORMATION
  Report Type: Report from Study
  Country: US (occurrence: US)
  Receive Date: 20200314
  Receipt Date: 20200314
  Transmission Date: 20200409
  Serious: No
  Sender: FDA-Public Use
  Company Number: NVSC2020US071854

PATIENT
  Sex: Female

DRUGS (1)
  1. COSENTYX [Suspect]
     Active Substance: SECUKINUMAB
     Indication: PSORIATIC ARTHROPATHY
     Dosage: UNK UNK, QW (QW FOR 5 WEEKS, THEN Q4W)
     Route: 058
     Dates: start: 20200109

REACTIONS (2)
  - Condition aggravated [Unknown]
  - Peripheral swelling [Unknown]
